FAERS Safety Report 12255756 (Version 1)
Quarter: 2016Q2

REPORT INFORMATION
  Report Type: Spontaneous
  Country: US (occurrence: None)
  Receive Date: 20160411
  Receipt Date: 20160411
  Transmission Date: 20160815
  Serious: Yes (Hospitalization)
  Sender: FDA-Public Use
  Company Number: None

PATIENT
  Age: 72 Year
  Sex: Male
  Weight: 104.33 kg

DRUGS (18)
  1. VALACYCLOVIR [Concomitant]
     Active Substance: VALACYCLOVIR HYDROCHLORIDE
  2. MORPHINE SULF [Concomitant]
     Active Substance: MORPHINE SULFATE
  3. AMBIEN [Concomitant]
     Active Substance: ZOLPIDEM TARTRATE
  4. VITAMIN D3 [Concomitant]
     Active Substance: CHOLECALCIFEROL
  5. DARZALEX [Suspect]
     Active Substance: DARATUMUMAB
     Indication: PLASMA CELL MYELOMA
     Dosage: 1 A WEEK, INTO A VEIN
     Dates: start: 20160316, end: 20160330
  6. DIFLUCAN [Concomitant]
     Active Substance: FLUCONAZOLE
  7. POTASSIUM [Concomitant]
     Active Substance: POTASSIUM
  8. HOME O2 [Concomitant]
  9. VITAMIN B12 [Concomitant]
     Active Substance: CYANOCOBALAMIN
  10. ELIQUIS [Concomitant]
     Active Substance: APIXABAN
  11. PROZAC [Concomitant]
     Active Substance: FLUOXETINE HYDROCHLORIDE
  12. PERCOCET [Concomitant]
     Active Substance: ACETAMINOPHEN\OXYCODONE HYDROCHLORIDE
  13. ZOFRAN [Concomitant]
     Active Substance: ONDANSETRON HYDROCHLORIDE
  14. LOPRESSOR [Concomitant]
     Active Substance: METOPROLOL TARTRATE
  15. PACEMAKER [Concomitant]
  16. BUMEX [Concomitant]
     Active Substance: BUMETANIDE
  17. MAGNESIUM OXIDE. [Concomitant]
     Active Substance: MAGNESIUM OXIDE
  18. LIBRAX [Concomitant]
     Active Substance: CHLORDIAZEPOXIDE HYDROCHLORIDE\CLIDINIUM BROMIDE

REACTIONS (16)
  - Sepsis [None]
  - Hiccups [None]
  - Aphthous ulcer [None]
  - Bronchitis [None]
  - Thrombocytopenia [None]
  - Respiratory failure [None]
  - Eructation [None]
  - Neutropenia [None]
  - Oedema peripheral [None]
  - Oropharyngeal pain [None]
  - Candida infection [None]
  - Feeding disorder [None]
  - Pneumonia [None]
  - Dysphagia [None]
  - Anaemia [None]
  - Laboratory test abnormal [None]

NARRATIVE: CASE EVENT DATE: 20160407
